FAERS Safety Report 10284970 (Version 1)
Quarter: 2014Q3

REPORT INFORMATION
  Report Type: Spontaneous
  Country: GB (occurrence: GB)
  Receive Date: 20140708
  Receipt Date: 20140708
  Transmission Date: 20150326
  Serious: Yes (Hospitalization)
  Sender: FDA-Public Use
  Company Number: GB-GLAXOSMITHKLINE-B1010128A

PATIENT
  Age: 73 Year
  Sex: Male

DRUGS (9)
  1. ZYBAN [Suspect]
     Active Substance: BUPROPION HYDROCHLORIDE
     Indication: SMOKING CESSATION THERAPY
     Dosage: 300MG PER DAY
     Route: 048
  2. ADCAL-D3 [Concomitant]
     Active Substance: CALCIUM CARBONATE\CHOLECALCIFEROL
  3. LANSOPRAZOLE. [Concomitant]
     Active Substance: LANSOPRAZOLE
  4. HYPROMELLOSE [Concomitant]
     Active Substance: HYPROMELLOSES
  5. METOCLOPRAMIDE. [Concomitant]
     Active Substance: METOCLOPRAMIDE
  6. CROMOGLICATE SODIUM [Concomitant]
     Active Substance: CROMOLYN SODIUM
  7. LOPERAMIDE [Concomitant]
     Active Substance: LOPERAMIDE
  8. LORATADINE. [Concomitant]
     Active Substance: LORATADINE
  9. PARACETAMOL [Concomitant]
     Active Substance: ACETAMINOPHEN

REACTIONS (2)
  - Hypothermia [Recovered/Resolved]
  - Hypoglycaemia [Recovered/Resolved]

NARRATIVE: CASE EVENT DATE: 201403
